FAERS Safety Report 7546662-1 (Version None)
Quarter: 2011Q2

REPORT INFORMATION
  Report Type: 
  Country: None (occurrence: None)
  Receive Date: 20110524
  Receipt Date: 20110330
  Transmission Date: 20111010
  Serious: No
  Sender: FDA-Public Use
  Company Number: 027804

PATIENT
  Sex: Female

DRUGS (1)
  1. CIMZIA [Suspect]
     Indication: CROHN'S DISEASE
     Dosage: (SUBCUTANEOUS)
     Route: 058
     Dates: start: 20110114

REACTIONS (10)
  - NAUSEA [None]
  - CONSTIPATION [None]
  - NERVOUSNESS [None]
  - COUGH [None]
  - DISTURBANCE IN ATTENTION [None]
  - ARTHRALGIA [None]
  - DIARRHOEA [None]
  - DIZZINESS [None]
  - NIGHT SWEATS [None]
  - MUSCLE SPASMS [None]
